FAERS Safety Report 7061847-9 (Version None)
Quarter: 2010Q4

REPORT INFORMATION
  Report Type: 
  Country: None (occurrence: None)
  Receive Date: 20101026
  Receipt Date: 20101019
  Transmission Date: 20110411
  Serious: Yes (Other)
  Sender: FDA-Public Use
  Company Number: DE-ROCHE-735682

PATIENT
  Sex: Male
  Weight: 80 kg

DRUGS (4)
  1. TOCILIZUMAB [Suspect]
     Indication: RHEUMATOID ARTHRITIS
     Route: 065
     Dates: start: 20090603, end: 20100225
  2. MTX [Concomitant]
     Indication: RHEUMATOID ARTHRITIS
     Route: 058
  3. DECORTIN H [Concomitant]
     Indication: RHEUMATOID ARTHRITIS
  4. VOLTAREN [Concomitant]

REACTIONS (1)
  - PSORIASIS [None]
